FAERS Safety Report 9901309 (Version 2)
Quarter: 2014Q4

REPORT INFORMATION
  Report Type: Spontaneous
  Country: US (occurrence: US)
  Receive Date: 20140217
  Receipt Date: 20141121
  Transmission Date: 20150529
  Serious: Yes (Hospitalization, Other)
  Sender: FDA-Public Use
  Company Number: US-BAYER-2014-024514

PATIENT
  Age: 23 Year
  Sex: Female
  Weight: 99.77 kg

DRUGS (10)
  1. ORTHO TRI CYCLEN LO [Concomitant]
     Active Substance: ETHINYL ESTRADIOL\NORGESTIMATE
  2. METRONIDAZOLE. [Concomitant]
     Active Substance: METRONIDAZOLE
  3. FLUCONAZOLE. [Concomitant]
     Active Substance: FLUCONAZOLE
  4. MOTRIN [Concomitant]
     Active Substance: IBUPROFEN
  5. MIRENA [Suspect]
     Active Substance: LEVONORGESTREL
     Indication: CONTRACEPTION
     Dosage: 20 MCG/24HR, CONT
     Route: 015
     Dates: start: 20090817, end: 20120820
  6. ALBUTEROL. [Concomitant]
     Active Substance: ALBUTEROL
  7. TERAZOL [Concomitant]
     Active Substance: TERCONAZOLE
  8. ORTHO TRI CYCLEN [Concomitant]
     Active Substance: ETHINYL ESTRADIOL\NORGESTIMATE
  9. PRENATAL [Concomitant]
     Active Substance: VITAMINS
  10. ADVAIR HFA [Concomitant]
     Active Substance: FLUTICASONE PROPIONATE\SALMETEROL XINAFOATE

REACTIONS (11)
  - Injury [None]
  - Medical device discomfort [None]
  - Procedural pain [None]
  - Device failure [None]
  - Scar [None]
  - Emotional distress [None]
  - Embedded device [None]
  - Depression [None]
  - Pain [None]
  - Medical device pain [None]
  - Anxiety [None]

NARRATIVE: CASE EVENT DATE: 2009
